FAERS Safety Report 25664622 (Version 1)
Quarter: 2025Q3

REPORT INFORMATION
  Report Type: Spontaneous
  Country: IL (occurrence: IL)
  Receive Date: 20250811
  Receipt Date: 20250811
  Transmission Date: 20251021
  Serious: Yes (Death)
  Sender: CSL BEHRING
  Company Number: IL-BEH-2025215376

PATIENT
  Age: 77 Year
  Sex: Male

DRUGS (1)
  1. KORSUVA [Suspect]
     Active Substance: DIFELIKEFALIN ACETATE
     Route: 065

REACTIONS (1)
  - Pulmonary oedema [Fatal]
